FAERS Safety Report 22260935 (Version 1)
Quarter: 2023Q2

REPORT INFORMATION
  Report Type: Spontaneous
  Country: TR (occurrence: TR)
  Receive Date: 20230427
  Receipt Date: 20230427
  Transmission Date: 20230722
  Serious: Yes (Death, Hospitalization)
  Sender: FDA-Public Use
  Company Number: TR-APIL-2312340US

PATIENT
  Sex: Female

DRUGS (1)
  1. BOTULINUM TOXIN TYPE A [Suspect]
     Active Substance: BOTULINUM TOXIN TYPE A
     Indication: Weight decreased
     Dosage: UNK, SINGLE, GASTRIC
     Dates: start: 20230223, end: 20230223

REACTIONS (7)
  - Eating disorder [Fatal]
  - Gait disturbance [Fatal]
  - Fluid intake reduced [Fatal]
  - Speech disorder [Fatal]
  - Dysphagia [Fatal]
  - Dyspnoea [Fatal]
  - Off label use [Unknown]

NARRATIVE: CASE EVENT DATE: 20230223
